FAERS Safety Report 21440971 (Version 1)
Quarter: 2022Q4

REPORT INFORMATION
  Report Type: Spontaneous
  Country: US (occurrence: US)
  Receive Date: 20221011
  Receipt Date: 20221011
  Transmission Date: 20230113
  Serious: Yes (Other)
  Sender: FDA-Public Use
  Company Number: US-PFIZER INC-PV202200078239

PATIENT
  Age: 64 Year
  Sex: Female

DRUGS (1)
  1. VFEND [Suspect]
     Active Substance: VORICONAZOLE
     Indication: Acute lymphocytic leukaemia
     Dosage: 200 MG, 2X/DAY
     Route: 048

REACTIONS (3)
  - Myelodysplastic syndrome [Unknown]
  - Off label use [Unknown]
  - Drug ineffective for unapproved indication [Unknown]
